FAERS Safety Report 13489526 (Version 1)
Quarter: 2017Q2

REPORT INFORMATION
  Report Type: Spontaneous
  Country: US (occurrence: US)
  Receive Date: 20170426
  Receipt Date: 20170426
  Transmission Date: 20170830
  Serious: No
  Sender: FDA-Public Use
  Company Number: US-ALKERMES INC.-ALK-2017-001021

PATIENT
  Age: 28 Year
  Sex: Male
  Weight: 92.97 kg

DRUGS (1)
  1. VIVITROL [Suspect]
     Active Substance: NALTREXONE
     Indication: DRUG USE DISORDER
     Dosage: 380 MG, QMO
     Route: 030
     Dates: start: 20170307

REACTIONS (13)
  - Syringe issue [Recovered/Resolved]
  - Headache [Recovering/Resolving]
  - Asthenia [Unknown]
  - Injection site pain [Recovered/Resolved]
  - Restless legs syndrome [Unknown]
  - Product preparation error [Recovered/Resolved]
  - Injection site reaction [Recovered/Resolved]
  - Injection site mass [Recovered/Resolved]
  - Injection site induration [Recovered/Resolved]
  - Feeling abnormal [Unknown]
  - Upper-airway cough syndrome [Not Recovered/Not Resolved]
  - Migraine [Recovering/Resolving]
  - Dysgeusia [Not Recovered/Not Resolved]

NARRATIVE: CASE EVENT DATE: 201703
